FAERS Safety Report 23987199 (Version 5)
Quarter: 2024Q3

REPORT INFORMATION
  Report Type: Spontaneous
  Country: US (occurrence: US)
  Receive Date: 20240618
  Receipt Date: 20240917
  Transmission Date: 20241016
  Serious: No
  Sender: LUNDBECK
  Company Number: US-LUNDBECK-DKLU4000508

PATIENT

DRUGS (1)
  1. VYEPTI [Suspect]
     Active Substance: EPTINEZUMAB-JJMR
     Indication: Migraine
     Route: 041
     Dates: start: 20240611

REACTIONS (4)
  - Arthralgia [Recovered/Resolved]
  - Musculoskeletal stiffness [Recovered/Resolved]
  - Myalgia [Unknown]
  - Therapeutic product effect incomplete [Unknown]

NARRATIVE: CASE EVENT DATE: 20240611
